FAERS Safety Report 16043705 (Version 2)
Quarter: 2019Q2

REPORT INFORMATION
  Report Type: Spontaneous
  Country: US (occurrence: US)
  Receive Date: 20190306
  Receipt Date: 20190402
  Transmission Date: 20190711
  Serious: No
  Sender: FDA-Public Use
  Company Number: US-BAUSCH-BL-2019-005284

PATIENT
  Age: 27 Year
  Sex: Female
  Weight: 63.56 kg

DRUGS (3)
  1. CLARITIN [Concomitant]
     Active Substance: LORATADINE
     Indication: HYPERSENSITIVITY
     Dosage: EVERYDAY
  2. ONEXTON [Suspect]
     Active Substance: BENZOYL PEROXIDE\CLINDAMYCIN PHOSPHATE
     Indication: ACNE
     Dosage: ONCE NIGHTLY (SMALL PEA SIZE AMOUNT)
     Route: 061
     Dates: start: 20190210, end: 20190213
  3. MULTIVITAMIN [Concomitant]
     Active Substance: VITAMINS
     Indication: PRODUCT USED FOR UNKNOWN INDICATION
     Dosage: EVERYDAY

REACTIONS (4)
  - Periorbital swelling [Recovered/Resolved]
  - Rash [Recovered/Resolved]
  - Swelling [Recovered/Resolved]
  - Pruritus [Recovered/Resolved]

NARRATIVE: CASE EVENT DATE: 20190213
